FAERS Safety Report 5972847-1 (Version None)
Quarter: 2008Q4

REPORT INFORMATION
  Report Type: 
  Country: None (occurrence: None)
  Receive Date: 20081201
  Receipt Date: 20080110
  Transmission Date: 20090506
  Serious: No
  Sender: FDA-Public Use
  Company Number: US-AMGEN-KDL260205

PATIENT
  Sex: Female

DRUGS (3)
  1. ENBREL [Suspect]
     Indication: RHEUMATOID ARTHRITIS
     Route: 058
     Dates: start: 20070823
  2. ENBREL [Suspect]
     Indication: ANKYLOSING SPONDYLITIS
  3. PLAQUENIL [Concomitant]
     Dates: start: 20050101

REACTIONS (3)
  - ANKYLOSING SPONDYLITIS [None]
  - INJECTION SITE REACTION [None]
  - RHEUMATOID ARTHRITIS [None]
